FAERS Safety Report 4652902-9 (Version None)
Quarter: 2005Q2

REPORT INFORMATION
  Report Type: 
  Country: None (occurrence: None)
  Receive Date: 20050503
  Receipt Date: 20050422
  Transmission Date: 20051028
  Serious: Yes (Other)
  Sender: FDA-Public Use
  Company Number: 2005AP02449

PATIENT
  Sex: Female

DRUGS (4)
  1. IRESSA [Suspect]
     Indication: LUNG NEOPLASM MALIGNANT
     Dosage: 250 MG DAILY PO
     Route: 048
  2. EUGLUCON [Concomitant]
  3. ACTOS [Concomitant]
  4. BETA-BLOCKING AGENTS [Concomitant]

REACTIONS (1)
  - HYPOGLYCAEMIA [None]
